FAERS Safety Report 16474286 (Version 1)
Quarter: 2019Q2

REPORT INFORMATION
  Report Type: Spontaneous
  Country: US (occurrence: US)
  Receive Date: 20190625
  Receipt Date: 20190625
  Transmission Date: 20190711
  Serious: No
  Sender: FDA-Public Use
  Company Number: US-PFIZER INC-2019270716

PATIENT
  Age: 12 Year
  Sex: Female
  Weight: 43.84 kg

DRUGS (1)
  1. GENOTROPIN [Suspect]
     Active Substance: SOMATROPIN
     Indication: GROWTH HORMONE DEFICIENCY
     Dosage: 1.6 MG, 1X/DAY (EACH NIGHT)
     Route: 058
     Dates: start: 20151030

REACTIONS (2)
  - Abdominal pain [Unknown]
  - Lactose intolerance [Unknown]
